FAERS Safety Report 17424089 (Version 1)
Quarter: 2020Q1

REPORT INFORMATION
  Report Type: Spontaneous
  Country: US (occurrence: US)
  Receive Date: 20200217
  Receipt Date: 20200217
  Transmission Date: 20200409
  Serious: Yes (Hospitalization, Other)
  Sender: FDA-Public Use
  Company Number: US-DRREDDYS-USA/USA/20/0119710

PATIENT
  Sex: Male

DRUGS (1)
  1. ZENATANE [Suspect]
     Active Substance: ISOTRETINOIN
     Indication: PRODUCT USED FOR UNKNOWN INDICATION
     Dosage: RMA ISSUE DATES: 11 NOVEMBER 2019, 12 DECEMBER 2019 AND 7 JANUARY 2020.
     Route: 048
     Dates: end: 20200118

REACTIONS (2)
  - Suicide attempt [Unknown]
  - Overdose [Unknown]
